FAERS Safety Report 8506637-2 (Version None)
Quarter: 2012Q3

REPORT INFORMATION
  Report Type: 
  Country: None (occurrence: None)
  Receive Date: 20120712
  Receipt Date: 20120710
  Transmission Date: 20120928
  Serious: No
  Sender: FDA-Public Use
  Company Number: US-PFIZER INC-2012165880

PATIENT
  Sex: Female

DRUGS (3)
  1. XANAX [Concomitant]
     Indication: PANIC ATTACK
     Dosage: UNK, AS NEEDED
  2. PRISTIQ [Suspect]
     Indication: DEPRESSION
  3. PRISTIQ [Suspect]
     Indication: PANIC ATTACK
     Dosage: 50 MG, 1X/DAY
     Route: 048
     Dates: start: 20120601

REACTIONS (1)
  - MEDICATION RESIDUE [None]
